FAERS Safety Report 8113803-7 (Version None)
Quarter: 2012Q1

REPORT INFORMATION
  Report Type: 
  Country: None (occurrence: None)
  Receive Date: 20120203
  Receipt Date: 20120125
  Transmission Date: 20120608
  Serious: Yes (Other)
  Sender: FDA-Public Use
  Company Number: CHPA2012US001733

PATIENT
  Age: 4 Year
  Sex: Male

DRUGS (1)
  1. TRIAMINIC DAY TIME COLD + COUGH [Suspect]
     Indication: NASOPHARYNGITIS
     Dosage: 1 TSP, QD
     Route: 048
     Dates: start: 20120116, end: 20120117

REACTIONS (5)
  - MUSCLE SPASMS [None]
  - MYDRIASIS [None]
  - HALLUCINATION, VISUAL [None]
  - FEAR [None]
  - DRUG EFFECT INCREASED [None]
